FAERS Safety Report 6970213-3 (Version None)
Quarter: 2010Q3

REPORT INFORMATION
  Report Type: 
  Country: None (occurrence: None)
  Receive Date: 20100823
  Receipt Date: 20100611
  Transmission Date: 20110219
  Serious: No
  Sender: FDA-Public Use
  Company Number: 012603

PATIENT
  Sex: Female
  Weight: 70 kg

DRUGS (9)
  1. CIMZIA [Suspect]
     Indication: RHEUMATOID ARTHRITIS
     Dosage: 400 MG 1X/MONTH SUBCUTANEOUS
     Route: 058
     Dates: start: 20100101
  2. METHOTREXATE [Concomitant]
  3. PREDNISONE TAB [Concomitant]
  4. FOLIC ACID [Concomitant]
  5. IBUPROFEN [Concomitant]
  6. VITAMIN D [Concomitant]
  7. CALCIUM [Concomitant]
  8. ACTONEL [Concomitant]
  9. ALEVE (CAPLET) [Concomitant]

REACTIONS (5)
  - DRUG PRESCRIBING ERROR [None]
  - FATIGUE [None]
  - GLAUCOMA [None]
  - JOINT SWELLING [None]
  - PAIN [None]
